FAERS Safety Report 12122977 (Version 1)
Quarter: 2016Q1

REPORT INFORMATION
  Report Type: Spontaneous
  Country: US (occurrence: US)
  Receive Date: 20160227
  Receipt Date: 20160227
  Transmission Date: 20160526
  Serious: No
  Sender: FDA-Public Use
  Company Number: US-ACORDA-ACO_117287_2015

PATIENT

DRUGS (3)
  1. AMPYRA [Suspect]
     Active Substance: DALFAMPRIDINE
     Indication: PRODUCT USED FOR UNKNOWN INDICATION
     Route: 065
  2. VICODIN [Suspect]
     Active Substance: ACETAMINOPHEN\HYDROCODONE BITARTRATE
     Indication: PAIN
     Dosage: 5/300 MG
     Route: 065
  3. REBIF [Suspect]
     Active Substance: INTERFERON BETA-1A
     Indication: PRODUCT USED FOR UNKNOWN INDICATION
     Route: 065

REACTIONS (20)
  - Limb injury [Unknown]
  - Visual impairment [Unknown]
  - Rash macular [Unknown]
  - Hypoaesthesia [Unknown]
  - Muscle spasms [Unknown]
  - Balance disorder [Unknown]
  - Fall [Unknown]
  - Weight increased [Unknown]
  - Asthenia [Unknown]
  - Muscular weakness [Unknown]
  - Pain [Unknown]
  - Therapy cessation [Unknown]
  - Multiple sclerosis relapse [Unknown]
  - Abasia [Unknown]
  - Joint injury [Unknown]
  - Urticaria [Unknown]
  - Vision blurred [None]
  - Gait disturbance [Unknown]
  - Adverse reaction [Unknown]
  - Drug dose omission [Unknown]
